FAERS Safety Report 16081050 (Version 1)
Quarter: 2019Q1

REPORT INFORMATION
  Report Type: Spontaneous
  Country: GB (occurrence: GB)
  Receive Date: 20190316
  Receipt Date: 20190316
  Transmission Date: 20190418
  Serious: Yes (Other)
  Sender: FDA-Public Use
  Company Number: GB-TEVA-2019-GB-1023799

PATIENT
  Age: 6 Year
  Sex: Male
  Weight: 30.75 kg

DRUGS (3)
  1. ZONISAMIDE. [Concomitant]
     Active Substance: ZONISAMIDE
  2. CLOBAZAM. [Concomitant]
     Active Substance: CLOBAZAM
  3. SODIUM VALPROATE [Suspect]
     Active Substance: VALPROATE SODIUM
     Indication: EPILEPSY WITH MYOCLONIC-ATONIC SEIZURES
     Dosage: 800 MILLIGRAM DAILY;
     Route: 048
     Dates: start: 20171222, end: 20190101

REACTIONS (2)
  - Anaemia [Recovered/Resolved]
  - Reticulocyte count decreased [Unknown]

NARRATIVE: CASE EVENT DATE: 20180714
